FAERS Safety Report 4834049-1 (Version None)
Quarter: 2005Q4

REPORT INFORMATION
  Report Type: 
  Country: None (occurrence: None)
  Receive Date: 20051118
  Receipt Date: 20051118
  Transmission Date: 20060501
  Serious: Yes (Hospitalization)
  Sender: FDA-Public Use
  Company Number: None

PATIENT
  Sex: Female
  Weight: 54.5 kg

DRUGS (4)
  1. CISPLATIN [Suspect]
     Indication: SMALL CELL LUNG CANCER STAGE UNSPECIFIED
     Dosage: SEE IMAGE
     Dates: start: 20051026
  2. IRINOTECAN HCL [Suspect]
     Dosage: SEE IMAGE
  3. CARBOPLATIN [Suspect]
     Dosage: SEE IMAGE
     Dates: start: 20051026, end: 20051026
  4. ETOPOSIDE [Suspect]
     Dosage: SEE IMAGE
     Dates: start: 20051026, end: 20051028

REACTIONS (7)
  - DEHYDRATION [None]
  - DUODENAL STENOSIS [None]
  - ERYTHEMA [None]
  - GASTRIC DISORDER [None]
  - NEUTROPHIL COUNT DECREASED [None]
  - OESOPHAGITIS [None]
  - PAIN [None]
